FAERS Safety Report 16163495 (Version 1)
Quarter: 2019Q2

REPORT INFORMATION
  Report Type: Spontaneous
  Country: US (occurrence: US)
  Receive Date: 20190304
  Receipt Date: 20190304
  Transmission Date: 20190711
  Serious: Yes (Other)
  Sender: FDA-Public Use
  Company Number: None

PATIENT
  Age: 67 Year
  Sex: Female

DRUGS (1)
  1. TYSABRI [Suspect]
     Active Substance: NATALIZUMAB
     Dosage: ?          OTHER FREQUENCY:EVERY 4 WEEKS;?
     Route: 042

REACTIONS (1)
  - Intraductal proliferative breast lesion [None]

NARRATIVE: CASE EVENT DATE: 20190202
